FAERS Safety Report 11888873 (Version 1)
Quarter: 2016Q1

REPORT INFORMATION
  Report Type: Report from Study
  Country: GB (occurrence: GB)
  Receive Date: 20160105
  Receipt Date: 20160105
  Transmission Date: 20160526
  Serious: Yes (Hospitalization, Other)
  Sender: FDA-Public Use
  Company Number: GB-BIOGEN-2015BI104151

PATIENT
  Age: 55 Year
  Sex: Female
  Weight: 68.6 kg

DRUGS (4)
  1. BRICANYL INHALER [Concomitant]
     Indication: ASTHMA
     Route: 055
     Dates: start: 20121002
  2. TYSABRI [Suspect]
     Active Substance: NATALIZUMAB
     Indication: SECONDARY PROGRESSIVE MULTIPLE SCLEROSIS
     Route: 042
     Dates: start: 20141111
  3. LANSOPRAZOLE. [Concomitant]
     Active Substance: LANSOPRAZOLE
     Indication: GASTROOESOPHAGEAL REFLUX DISEASE
     Route: 048
     Dates: start: 20141202
  4. PULMICORT INHALER [Concomitant]
     Indication: ASTHMA
     Route: 055
     Dates: start: 20121002

REACTIONS (2)
  - Ankle fracture [Recovered/Resolved]
  - Fall [Recovered/Resolved]

NARRATIVE: CASE EVENT DATE: 20150112
